FAERS Safety Report 12165573 (Version 2)
Quarter: 2016Q1

REPORT INFORMATION
  Report Type: Report from Study
  Country: US (occurrence: US)
  Receive Date: 20160309
  Receipt Date: 20160324
  Transmission Date: 20160526
  Serious: Yes (Life-Threatening)
  Sender: FDA-Public Use
  Company Number: US-GILEAD-2016-0201455

PATIENT
  Age: 73 Year
  Sex: Male
  Weight: 116.1 kg

DRUGS (15)
  1. LACTULOSE. [Concomitant]
     Active Substance: LACTULOSE
  2. NOVOLOG [Concomitant]
     Active Substance: INSULIN ASPART
  3. ASPIRIN                            /00002701/ [Concomitant]
     Active Substance: ASPIRIN
  4. LEVOTHYROXINE. [Concomitant]
     Active Substance: LEVOTHYROXINE
  5. VITAMIN D [Concomitant]
     Active Substance: CHOLECALCIFEROL
  6. RANOLAZINE [Suspect]
     Active Substance: RANOLAZINE
     Indication: ANGINA PECTORIS
     Dosage: 500 MG, BID
     Route: 048
     Dates: end: 201601
  7. FUROSEMIDE. [Concomitant]
     Active Substance: FUROSEMIDE
  8. LANTUS [Concomitant]
     Active Substance: INSULIN GLARGINE
  9. METOPROLOL TARTRATE. [Concomitant]
     Active Substance: METOPROLOL TARTRATE
  10. ALLOPURINOL. [Concomitant]
     Active Substance: ALLOPURINOL
  11. DEXILANT [Concomitant]
     Active Substance: DEXLANSOPRAZOLE
  12. HYDROCODONE BITARTRATE AND ACETAMINOPHEN [Concomitant]
     Active Substance: ACETAMINOPHEN\HYDROCODONE BITARTRATE
  13. SPIRONOLACTONE. [Concomitant]
     Active Substance: SPIRONOLACTONE
  14. LOSARTAN. [Concomitant]
     Active Substance: LOSARTAN
  15. NITROSTAT [Concomitant]
     Active Substance: NITROGLYCERIN

REACTIONS (3)
  - Arteriosclerosis coronary artery [Unknown]
  - Drug dose omission [Unknown]
  - Chest pain [Unknown]

NARRATIVE: CASE EVENT DATE: 201601
